FAERS Safety Report 15948740 (Version 1)
Quarter: 2019Q1

REPORT INFORMATION
  Report Type: Spontaneous
  Country: GB (occurrence: GB)
  Receive Date: 20190212
  Receipt Date: 20190212
  Transmission Date: 20190417
  Serious: Yes (Other)
  Sender: FDA-Public Use
  Company Number: GB-ACCORD-106672

PATIENT
  Age: 60 Year
  Sex: Male
  Weight: 75 kg

DRUGS (3)
  1. ASPIRIN. [Concomitant]
     Active Substance: ASPIRIN
     Dates: start: 1980, end: 2018
  2. BICALUTAMIDE. [Suspect]
     Active Substance: BICALUTAMIDE
     Indication: PROSTATE CANCER
     Route: 048
     Dates: start: 20180130, end: 20180427
  3. CIALIS [Concomitant]
     Active Substance: TADALAFIL
     Dosage: PER WEEK
     Dates: start: 201707

REACTIONS (1)
  - Hepatic necrosis [Not Recovered/Not Resolved]

NARRATIVE: CASE EVENT DATE: 20180418
